FAERS Safety Report 9033677 (Version 1)
Quarter: 2013Q1

REPORT INFORMATION
  Report Type: Spontaneous
  Country: CA (occurrence: CA)
  Receive Date: 20130128
  Receipt Date: 20130128
  Transmission Date: 20140127
  Serious: Yes (Other)
  Sender: FDA-Public Use
  Company Number: CA-AMGEN-CANSP2012078521

PATIENT
  Age: 51 Year
  Sex: Female

DRUGS (3)
  1. ENBREL [Suspect]
     Indication: PSORIASIS
     Dosage: UNK
     Dates: start: 20100828
  2. TYLENOL /00020001/ [Concomitant]
     Dosage: UNK
  3. NEXIUM                             /01479302/ [Concomitant]
     Indication: BLOOD PRESSURE
     Dosage: UNK

REACTIONS (1)
  - Bladder cancer [Not Recovered/Not Resolved]
